FAERS Safety Report 6801449-X (Version None)
Quarter: 2010Q2

REPORT INFORMATION
  Report Type: 
  Country: None (occurrence: None)
  Receive Date: 20100629
  Receipt Date: 20100621
  Transmission Date: 20101027
  Serious: Yes (Death)
  Sender: FDA-Public Use
  Company Number: NL-ROCHE-710636

PATIENT
  Age: 58 Year
  Sex: Male

DRUGS (2)
  1. ALL-TRANS-RETINOIC ACID [Suspect]
     Route: 065
  2. IDARUBICIN HCL [Concomitant]

REACTIONS (3)
  - PERICARDITIS [None]
  - RETINOIC ACID SYNDROME [None]
  - VENTRICULAR ARRHYTHMIA [None]
